FAERS Safety Report 8381034-1 (Version None)
Quarter: 2012Q2

REPORT INFORMATION
  Report Type: 
  Country: None (occurrence: None)
  Receive Date: 20120522
  Receipt Date: 20110914
  Transmission Date: 20120825
  Serious: No
  Sender: FDA-Public Use
  Company Number: 2011-08634

PATIENT
  Age: 92 Year
  Sex: Female

DRUGS (10)
  1. THERACYS [Suspect]
     Indication: PRODUCT USED FOR UNKNOWN INDICATION
     Dosage: I.VES., MONTHLY
     Route: 042
  2. LIPITOR [Concomitant]
  3. LISINOPRIL [Concomitant]
  4. FLECAINADE [Concomitant]
  5. CALCIUM [Concomitant]
  6. VITAMIN C [Concomitant]
  7. SIMVASTATIN [Concomitant]
  8. ASPIRIN [Concomitant]
  9. VITAMIN D [Concomitant]
  10. METOPROLOL SUCCINATE [Concomitant]

REACTIONS (1)
  - ALOPECIA [None]
